FAERS Safety Report 5080405-9 (Version None)
Quarter: 2006Q3

REPORT INFORMATION
  Report Type: 
  Country: None (occurrence: None)
  Receive Date: 20060814
  Receipt Date: 20060814
  Transmission Date: 20061208
  Serious: Yes (Hospitalization)
  Sender: FDA-Public Use
  Company Number: None

PATIENT
  Sex: Female
  Weight: 54.4316 kg

DRUGS (4)
  1. ERBITUX [Suspect]
     Indication: NEOPLASM MALIGNANT
     Dosage: 392.5MG , WEEKLY, IV
     Route: 042
     Dates: start: 20060412, end: 20060626
  2. PACLITAXEL [Suspect]
     Indication: NEOPLASM MALIGNANT
     Dosage: 62.8 MG, WEEKLY, IV
     Route: 042
     Dates: start: 20060515, end: 20060626
  3. CARBOPLATIN [Suspect]
     Indication: NEOPLASM MALIGNANT
     Dosage: 127 MG, WEEKLY, IV
     Route: 042
     Dates: start: 20060515, end: 20060626
  4. RADIATION [Suspect]
     Indication: NEOPLASM MALIGNANT
     Dosage: A500 CGY FOR 5 WEEKS/A700CGY WAS G8
     Dates: start: 20060515, end: 20060727

REACTIONS (6)
  - ANGINA PECTORIS [None]
  - DYSPNOEA [None]
  - ENTEROCOCCAL INFECTION [None]
  - INFECTION [None]
  - PRODUCTIVE COUGH [None]
  - PYREXIA [None]
